FAERS Safety Report 11254827 (Version 1)
Quarter: 2015Q3

REPORT INFORMATION
  Report Type: Spontaneous
  Country: US (occurrence: US)
  Receive Date: 20150709
  Receipt Date: 20150709
  Transmission Date: 20151125
  Serious: No
  Sender: FDA-Public Use
  Company Number: US-SA-2014SA147335

PATIENT

DRUGS (2)
  1. INH [Concomitant]
     Active Substance: ISONIAZID
  2. PRIFTIN [Suspect]
     Active Substance: RIFAPENTINE
     Indication: TUBERCULOSIS
     Route: 065
     Dates: start: 201410

REACTIONS (3)
  - Hyponatraemia [Not Recovered/Not Resolved]
  - Blood creatinine increased [Not Recovered/Not Resolved]
  - Blood urea increased [Not Recovered/Not Resolved]

NARRATIVE: CASE EVENT DATE: 20141021
